FAERS Safety Report 6055652-X (Version None)
Quarter: 2009Q1

REPORT INFORMATION
  Report Type: 
  Country: None (occurrence: None)
  Receive Date: 20090123
  Receipt Date: 20090108
  Transmission Date: 20090719
  Serious: Yes (Other)
  Sender: FDA-Public Use
  Company Number: FDB-2009-001

PATIENT
  Age: 65 Year
  Sex: Male

DRUGS (2)
  1. KIT FOR PREPARATION TECHNETIUM TC99M SULFUR COLLOID [Suspect]
     Indication: LIVER SCAN
     Dosage: 7 MCI IN 0.37ML, IV
     Route: 042
     Dates: start: 20081223
  2. KIT FOR PREPARATION TECHNETIUM TC99M SULFUR COLLOID [Suspect]
     Indication: SCAN
     Dosage: 7 MCI IN 0.37ML, IV
     Route: 042
     Dates: start: 20081223

REACTIONS (5)
  - CONVULSION [None]
  - FEELING ABNORMAL [None]
  - HYPERHIDROSIS [None]
  - IMMEDIATE POST-INJECTION REACTION [None]
  - SYNCOPE [None]
